FAERS Safety Report 7947231-1 (Version None)
Quarter: 2011Q4

REPORT INFORMATION
  Report Type: 
  Country: None (occurrence: None)
  Receive Date: 20111129
  Receipt Date: 20111115
  Transmission Date: 20120403
  Serious: Yes (Hospitalization)
  Sender: FDA-Public Use
  Company Number: US-ASTRAZENECA-2011SE49394

PATIENT
  Age: 59 Year
  Sex: Female
  Weight: 47.2 kg

DRUGS (12)
  1. SEROQUEL [Suspect]
     Route: 048
  2. SEROQUEL [Suspect]
     Indication: SLEEP DISORDER
     Route: 048
     Dates: start: 20110301, end: 20110701
  3. SEROQUEL [Suspect]
     Route: 048
  4. TRAMADOL HCL [Concomitant]
  5. SEROQUEL [Suspect]
     Indication: DEPRESSION
     Route: 048
     Dates: start: 20110301, end: 20110701
  6. VITAMIN D [Concomitant]
  7. MULTI-VITAMINS [Concomitant]
  8. LYRICA [Concomitant]
  9. COE Q10 [Concomitant]
  10. CYMBALTA [Concomitant]
     Indication: DEPRESSION
  11. SEROQUEL [Suspect]
     Route: 048
  12. SEROQUEL [Suspect]
     Route: 048

REACTIONS (10)
  - HALLUCINATIONS, MIXED [None]
  - MALAISE [None]
  - PNEUMONIA [None]
  - METABOLIC ACIDOSIS [None]
  - HEARING IMPAIRED [None]
  - BRUXISM [None]
  - TOOTH FRACTURE [None]
  - FEELING ABNORMAL [None]
  - TREMOR [None]
  - OFF LABEL USE [None]
